FAERS Safety Report 5072934-9 (Version None)
Quarter: 2006Q3

REPORT INFORMATION
  Report Type: 
  Country: None (occurrence: None)
  Receive Date: 20060802
  Receipt Date: 20060725
  Transmission Date: 20061208
  Serious: Yes (Life-Threatening, Hospitalization)
  Sender: FDA-Public Use
  Company Number: 223198

PATIENT
  Age: 62 Year
  Sex: Female
  Weight: 83.5 kg

DRUGS (20)
  1. MABTHERA           (RITUXIMAB) CONC FOR SOLUTION FOR INFUSION [Suspect]
     Indication: CHRONIC LYMPHOCYTIC LEUKAEMIA
     Dosage: 700 MG, INTRAVENOUS
     Route: 042
     Dates: start: 20050707
  2. RESPRIM FORTE      (SULFAMETHOXAZOLE, TRIMETHOPRIM) [Suspect]
     Indication: PNEUMOCYSTIS JIROVECI INFECTION
     Dosage: 3 TABLET, 2/WEEK, ORAL
     Route: 048
     Dates: start: 20050915, end: 20060309
  3. CYCLOPHOSPHAMIDE [Suspect]
     Indication: CHRONIC LYMPHOCYTIC LEUKAEMIA
     Dosage: 454 MG, INTRAVENOUS
     Route: 042
     Dates: start: 20050708, end: 20050904
  4. FLUDARABINE [Suspect]
     Indication: CHRONIC LYMPHOCYTIC LEUKAEMIA
     Dosage: 45 MG, QDX3D/28DC, INTRAVENOUS
     Route: 042
     Dates: start: 20050708, end: 20050904
  5. LEVOTHYROXINE SODIUM [Concomitant]
  6. PANCRELIPASE (PANCRELIPASE) [Concomitant]
  7. ERGOCALCIFEROL (ERGOCALCIFEROL) [Concomitant]
  8. ESTRADIOL [Concomitant]
  9. NYSTATIN [Concomitant]
  10. MIDAZOLAM HYDROCHLORIDE [Concomitant]
  11. LIDOCAINE [Concomitant]
  12. SHARK LIVER OIL (SHARK OIL) [Concomitant]
  13. LIVER DIETARY SUPPLEMENT (NUTRITIONAL SUPPLEMENT) [Concomitant]
  14. ASCORBIC ACID [Concomitant]
  15. VITAMINS + MINERALS (MINERALS NOS, MULTIVITAMINS  NOS) [Concomitant]
  16. HERBAL DRUG NOS    (HERBAL,HOMEOPATHIC,+DIETARY SUPPLEMENTS) [Concomitant]
  17. EPA (EICOSAPENTAENOIIC ACID) [Concomitant]
  18. DHA (DOCOSAHEXAENOIC ACID) [Concomitant]
  19. ............ [Concomitant]
  20. BACTRIM [Concomitant]

REACTIONS (4)
  - AGRANULOCYTOSIS [None]
  - COLD SWEAT [None]
  - LETHARGY [None]
  - PAIN [None]
